FAERS Safety Report 12659735 (Version 3)
Quarter: 2016Q3

REPORT INFORMATION
  Report Type: Report from Study
  Country: FR (occurrence: FR)
  Receive Date: 20160817
  Receipt Date: 20160920
  Transmission Date: 20161109
  Serious: Yes (Other)
  Sender: FDA-Public Use
  Company Number: PHHY2016FR102433

PATIENT
  Sex: Female

DRUGS (2)
  1. ZARZIO [Suspect]
     Active Substance: FILGRASTIM
     Indication: PRODUCT USED FOR UNKNOWN INDICATION
     Dosage: 4 DF, UNK
     Route: 058
     Dates: start: 20160527
  2. ZARZIO [Suspect]
     Active Substance: FILGRASTIM
     Dosage: 4 DF, UNK
     Route: 058
     Dates: start: 20160702, end: 20160705

REACTIONS (2)
  - No adverse event [Recovered/Resolved]
  - Inappropriate schedule of drug administration [Recovered/Resolved]

NARRATIVE: CASE EVENT DATE: 20160702
